FAERS Safety Report 20469977 (Version 1)
Quarter: 2022Q1

REPORT INFORMATION
  Report Type: Report from Study
  Country: IT (occurrence: IT)
  Receive Date: 20220214
  Receipt Date: 20220214
  Transmission Date: 20220423
  Serious: Yes (Hospitalization)
  Sender: FDA-Public Use
  Company Number: IT-PFIZER INC-202200242107

PATIENT

DRUGS (2)
  1. LORAZEPAM [Interacting]
     Active Substance: LORAZEPAM
     Indication: Schizophrenia
     Dosage: 4 MG
     Route: 030
  2. HALOPERIDOL [Interacting]
     Active Substance: HALOPERIDOL
     Indication: Schizophrenia
     Dosage: 2 MG
     Route: 030

REACTIONS (2)
  - Dystonia [Unknown]
  - Drug interaction [Unknown]
